FAERS Safety Report 25319047 (Version 1)
Quarter: 2025Q2

REPORT INFORMATION
  Report Type: Report from Study
  Country: US (occurrence: US)
  Receive Date: 20250515
  Receipt Date: 20250515
  Transmission Date: 20250717
  Serious: Yes (Hospitalization)
  Sender: RECORDATI
  Company Number: US-ORPHANEU-2025003280

PATIENT
  Age: 20 Year
  Sex: Female
  Weight: 133.33 kg

DRUGS (5)
  1. ISTURISA [Suspect]
     Active Substance: OSILODROSTAT PHOSPHATE
     Indication: Pituitary-dependent Cushing^s syndrome
     Dosage: 4 MG, BID
     Route: 048
     Dates: end: 202504
  2. ISTURISA [Suspect]
     Active Substance: OSILODROSTAT PHOSPHATE
     Dosage: 4 MG, BID
     Route: 048
     Dates: start: 202504
  3. CALCIUM CITRATE\CHOLECALCIFEROL [Concomitant]
     Active Substance: CALCIUM CITRATE\CHOLECALCIFEROL
     Indication: Product used for unknown indication
     Dosage: 315-6.25 (UNITS NOT REPORTED), QD (TABLET)
     Route: 048
     Dates: start: 20240102
  4. MIRTAZAPINE [Concomitant]
     Active Substance: MIRTAZAPINE
     Indication: Product used for unknown indication
     Dosage: 15 MG, QD (BED TIME) (ORAL TABLET)
     Route: 048
     Dates: start: 20240102
  5. LO LOESTRIN FE [Concomitant]
     Active Substance: ETHINYL ESTRADIOL\NORETHINDRONE ACETATE
     Indication: Product used for unknown indication
     Dosage: 1-20 (UNITS NOT REPORTED ONCE DAILY)
     Route: 048
     Dates: start: 20250228

REACTIONS (1)
  - Kidney infection [Recovered/Resolved]

NARRATIVE: CASE EVENT DATE: 20250401
